FAERS Safety Report 21796218 (Version 1)
Quarter: 2022Q4

REPORT INFORMATION
  Report Type: Spontaneous
  Country: IT (occurrence: IT)
  Receive Date: 20221229
  Receipt Date: 20221229
  Transmission Date: 20230112
  Serious: Yes (Other)
  Sender: FDA-Public Use
  Company Number: None

PATIENT
  Age: 69 Year
  Sex: Female
  Weight: 77 kg

DRUGS (3)
  1. MEDROL [Suspect]
     Active Substance: METHYLPREDNISOLONE
     Indication: Rheumatoid arthritis
     Dosage: 4 MG, ALTERNATE DAY
     Route: 048
     Dates: start: 20220622, end: 20221221
  2. METHOTREXATE SODIUM [Suspect]
     Active Substance: METHOTREXATE SODIUM
     Indication: Rheumatoid arthritis
     Dosage: 10 MG, EVERY 7 DAYS
     Route: 048
     Dates: start: 19950515, end: 20221214
  3. INFLIXIMAB [Suspect]
     Active Substance: INFLIXIMAB
     Indication: Rheumatoid arthritis
     Dosage: 300 MG EVRY 8 WEEKS
     Route: 042
     Dates: start: 20191028, end: 20221026

REACTIONS (2)
  - Arthritis bacterial [Not Recovered/Not Resolved]
  - Synovial cyst [Unknown]

NARRATIVE: CASE EVENT DATE: 20221201
